FAERS Safety Report 24668665 (Version 2)
Quarter: 2025Q3

REPORT INFORMATION
  Report Type: Spontaneous
  Country: EU (occurrence: EU)
  Receive Date: 20241127
  Receipt Date: 20250809
  Transmission Date: 20251021
  Serious: Yes (Life-Threatening, Hospitalization, Other)
  Sender: ALEXION PHARMACEUTICALS
  Company Number: None

PATIENT
  Age: 71 Year
  Sex: Male

DRUGS (10)
  1. TICAGRELOR [Suspect]
     Active Substance: TICAGRELOR
     Indication: Dressler^s syndrome
     Dosage: 90 MILLIGRAM, Q12H
     Dates: start: 20240910, end: 20240911
  2. OMEPRAZOLE [Concomitant]
     Active Substance: OMEPRAZOLE
     Indication: Dyspepsia
  3. ATORVASTATIN [Concomitant]
     Active Substance: ATORVASTATIN
  4. CANDESARTAN [Concomitant]
     Active Substance: CANDESARTAN
     Dates: start: 20240911
  5. HEPARIN [Concomitant]
     Active Substance: HEPARIN SODIUM
     Indication: Angiogram
  6. METOPROLOL [Concomitant]
     Active Substance: METOPROLOL
  7. OMEPRAZOLE [Concomitant]
     Active Substance: OMEPRAZOLE
     Indication: Gastric haemorrhage
     Dates: start: 20221103
  8. DIAZEPAM [Concomitant]
     Active Substance: DIAZEPAM
  9. TICAGRELOR [Suspect]
     Active Substance: TICAGRELOR
     Indication: Anticoagulant therapy
     Dosage: LADDNINGSDOS 2 TABLETTER, D?REFTER 1 TABLETT.
     Dates: start: 20240910, end: 20240911
  10. ASPIRIN [Concomitant]
     Active Substance: ASPIRIN

REACTIONS (1)
  - Thrombocytopenia [Recovered/Resolved]

NARRATIVE: CASE EVENT DATE: 20240911
